FAERS Safety Report 17655084 (Version 1)
Quarter: 2020Q2

REPORT INFORMATION
  Report Type: Spontaneous
  Country: US (occurrence: US)
  Receive Date: 20200409
  Receipt Date: 20200409
  Transmission Date: 20200713
  Serious: Yes (Hospitalization)
  Sender: FDA-Public Use
  Company Number: None

PATIENT
  Age: 26 Year
  Sex: Male
  Weight: 75.3 kg

DRUGS (2)
  1. METHOTREXATE (METHOTREXATE NA 2.5MG TAB) [Suspect]
     Active Substance: METHOTREXATE
     Indication: ARTHRALGIA
     Route: 048
     Dates: start: 20190220, end: 20190319
  2. METHOTREXATE (METHOTREXATE NA 2.5MG TAB) [Suspect]
     Active Substance: METHOTREXATE
     Indication: ARTHRITIS
     Route: 048
     Dates: start: 20190220, end: 20190319

REACTIONS (10)
  - Hepatic enzyme increased [None]
  - Haematemesis [None]
  - Skin disorder [None]
  - Vomiting [None]
  - Nausea [None]
  - Mucosal inflammation [None]
  - Epistaxis [None]
  - Psoriasis [None]
  - Treatment noncompliance [None]
  - Accidental overdose [None]

NARRATIVE: CASE EVENT DATE: 20190319
